FAERS Safety Report 9354503 (Version 4)
Quarter: 2013Q3

REPORT INFORMATION
  Report Type: Spontaneous
  Country: US (occurrence: US)
  Receive Date: 20130618
  Receipt Date: 20130903
  Transmission Date: 20140515
  Serious: Yes (Other)
  Sender: FDA-Public Use
  Company Number: US-ALLERGAN-1308618US

PATIENT
  Age: 40 Year
  Sex: Female

DRUGS (3)
  1. OZURDEX [Suspect]
     Indication: CHORIORETINITIS
     Dosage: 0.7 MG, SINGLE
     Route: 031
     Dates: start: 20130523, end: 20130523
  2. OZURDEX [Suspect]
     Dosage: 0.7 MG, SINGLE, EVERY 3-8 MONTHS
     Route: 031
     Dates: start: 20111121
  3. MULTIVITAMIN [Concomitant]
     Indication: PRODUCT USED FOR UNKNOWN INDICATION

REACTIONS (4)
  - Hyphaema [Recovered/Resolved]
  - Visual acuity reduced [Recovered/Resolved]
  - Intraocular pressure increased [Recovered/Resolved]
  - Injection site injury [Recovered/Resolved]
